FAERS Safety Report 4963657-2 (Version None)
Quarter: 2006Q1

REPORT INFORMATION
  Report Type: 
  Country: None (occurrence: None)
  Receive Date: 20060330
  Receipt Date: 20060314
  Transmission Date: 20060701
  Serious: Yes (Life-Threatening, Other)
  Sender: FDA-Public Use
  Company Number: FR-2006-005994

PATIENT
  Age: 70 Year
  Sex: Male
  Weight: 76 kg

DRUGS (18)
  1. FLUDARA [Suspect]
     Indication: CHRONIC LYMPHOCYTIC LEUKAEMIA
     Dosage: 50 MG, 1X/DAY, INTRAVENOUS
     Route: 042
     Dates: start: 20040601, end: 20040601
  2. FLUDARA [Suspect]
     Indication: CHRONIC LYMPHOCYTIC LEUKAEMIA
     Dosage: SEE IMAGE
     Route: 048
     Dates: start: 20040901, end: 20040901
  3. FLUDARA [Suspect]
     Indication: CHRONIC LYMPHOCYTIC LEUKAEMIA
     Dosage: SEE IMAGE
     Route: 048
     Dates: start: 20041001, end: 20041001
  4. FLUDARA [Suspect]
     Indication: CHRONIC LYMPHOCYTIC LEUKAEMIA
     Dosage: SEE IMAGE
     Route: 048
     Dates: start: 20050128, end: 20050130
  5. FLUDARA [Suspect]
     Indication: CHRONIC LYMPHOCYTIC LEUKAEMIA
     Dosage: SEE IMAGE
     Route: 048
     Dates: start: 20050316, end: 20050318
  6. FLUDARA [Suspect]
     Indication: CHRONIC LYMPHOCYTIC LEUKAEMIA
     Dosage: SEE IMAGE
     Route: 048
     Dates: start: 20050423, end: 20050424
  7. FLUDARA [Suspect]
     Indication: CHRONIC LYMPHOCYTIC LEUKAEMIA
     Dosage: SEE IMAGE
     Route: 048
     Dates: start: 20050522, end: 20050523
  8. FLUDARA [Suspect]
     Indication: CHRONIC LYMPHOCYTIC LEUKAEMIA
     Dosage: SEE IMAGE
     Route: 048
     Dates: start: 20050702, end: 20050702
  9. MABTHERA(RITUXIMAB) [Suspect]
     Indication: CHRONIC LYMPHOCYTIC LEUKAEMIA
     Dosage: 700 MG, 1 DOSE, INTRAVENOUS
     Route: 042
     Dates: start: 20050128, end: 20050128
  10. MABTHERA(RITUXIMAB) [Suspect]
     Indication: CHRONIC LYMPHOCYTIC LEUKAEMIA
     Dosage: 700 MG, 1 DOSE, INTRAVENOUS
     Route: 042
     Dates: start: 20050316, end: 20050316
  11. MABTHERA(RITUXIMAB) [Suspect]
     Indication: CHRONIC LYMPHOCYTIC LEUKAEMIA
     Dosage: 700 MG, 1 DOSE, INTRAVENOUS
     Route: 042
     Dates: start: 20050423, end: 20050423
  12. MABTHERA(RITUXIMAB) [Suspect]
     Indication: CHRONIC LYMPHOCYTIC LEUKAEMIA
     Dosage: 700 MG, 1 DOSE, INTRAVENOUS
     Route: 042
     Dates: start: 20050522, end: 20050522
  13. MABTHERA(RITUXIMAB) [Suspect]
     Indication: CHRONIC LYMPHOCYTIC LEUKAEMIA
     Dosage: 700 MG, 1 DOSE, INTRAVENOUS
     Route: 042
     Dates: start: 20050702, end: 20050702
  14. NOVANTRON(MITOXANTRONE, MITOXANTRONE HYDROCHLORIDE) [Suspect]
     Indication: CHRONIC LYMPHOCYTIC LEUKAEMIA
     Dosage: SEE IMAGE
     Route: 042
     Dates: start: 20050128, end: 20050128
  15. NOVANTRON(MITOXANTRONE, MITOXANTRONE HYDROCHLORIDE) [Suspect]
     Indication: CHRONIC LYMPHOCYTIC LEUKAEMIA
     Dosage: SEE IMAGE
     Route: 042
     Dates: start: 20050316, end: 20050316
  16. NOVANTRON(MITOXANTRONE, MITOXANTRONE HYDROCHLORIDE) [Suspect]
     Indication: CHRONIC LYMPHOCYTIC LEUKAEMIA
     Dosage: SEE IMAGE
     Route: 042
     Dates: start: 20050423, end: 20050423
  17. NOVANTRON(MITOXANTRONE, MITOXANTRONE HYDROCHLORIDE) [Suspect]
     Indication: CHRONIC LYMPHOCYTIC LEUKAEMIA
     Dosage: SEE IMAGE
     Route: 042
     Dates: start: 20050522, end: 20050522
  18. NOVANTRON(MITOXANTRONE, MITOXANTRONE HYDROCHLORIDE) [Suspect]
     Indication: CHRONIC LYMPHOCYTIC LEUKAEMIA
     Dosage: SEE IMAGE
     Route: 042
     Dates: start: 20050702, end: 20050702

REACTIONS (12)
  - DISORIENTATION [None]
  - EAR INFECTION VIRAL [None]
  - HEPATOSPLENOMEGALY [None]
  - HERPES VIRUS INFECTION [None]
  - NEUTROPENIA [None]
  - ORCHITIS [None]
  - PLATELET COUNT DECREASED [None]
  - PROGRESSIVE MULTIFOCAL LEUKOENCEPHALOPATHY [None]
  - PROSTATE INFECTION [None]
  - SKIN CANCER [None]
  - SOMNOLENCE [None]
  - URINARY TRACT INFECTION [None]
